FAERS Safety Report 14967165 (Version 1)
Quarter: 2018Q2

REPORT INFORMATION
  Report Type: Spontaneous
  Country: CN (occurrence: CN)
  Receive Date: 20180604
  Receipt Date: 20180604
  Transmission Date: 20180711
  Serious: Yes (Death)
  Sender: FDA-Public Use
  Company Number: CN-CHEPLA-C20170936

PATIENT

DRUGS (3)
  1. ARSENIC TRIOXIDE [Suspect]
     Active Substance: ARSENIC TRIOXIDE
     Indication: ACUTE PROMYELOCYTIC LEUKAEMIA
  2. CHEMOTHERAPY [Suspect]
     Active Substance: UNSPECIFIED INGREDIENT
     Indication: ACUTE PROMYELOCYTIC LEUKAEMIA
  3. ATRA [Suspect]
     Active Substance: TRETINOIN
     Indication: ACUTE PROMYELOCYTIC LEUKAEMIA

REACTIONS (7)
  - Haemorrhage [Fatal]
  - Infection [Fatal]
  - Mucormycosis [Fatal]
  - Haemorrhage intracranial [Fatal]
  - Pulmonary haemorrhage [Fatal]
  - Cardiac failure [Fatal]
  - Acute promyelocytic leukaemia differentiation syndrome [Fatal]
